FAERS Safety Report 13431104 (Version 2)
Quarter: 2017Q2

REPORT INFORMATION
  Report Type: Spontaneous
  Country: FR (occurrence: FR)
  Receive Date: 20170412
  Receipt Date: 20170427
  Transmission Date: 20170830
  Serious: Yes (Hospitalization, Other)
  Sender: FDA-Public Use
  Company Number: FR-PFIZER INC-2017155114

PATIENT
  Age: 30 Year
  Sex: Female

DRUGS (2)
  1. CYTOTEC [Concomitant]
     Active Substance: MISOPROSTOL
     Indication: ABORTION
  2. PROSTINE E2 [Suspect]
     Active Substance: DINOPROSTONE
     Indication: ABORTION
     Dosage: UNK
     Route: 067
     Dates: start: 20140706, end: 20140706

REACTIONS (4)
  - Haemorrhage in pregnancy [Recovered/Resolved]
  - Intentional product misuse [Recovered/Resolved]
  - Vulvovaginal burning sensation [Recovered/Resolved]
  - Drug ineffective for unapproved indication [Unknown]

NARRATIVE: CASE EVENT DATE: 20140706
